FAERS Safety Report 7104909-X (Version None)
Quarter: 2010Q4

REPORT INFORMATION
  Report Type: 
  Country: None (occurrence: None)
  Receive Date: 20101116
  Receipt Date: 20101108
  Transmission Date: 20110411
  Serious: No
  Sender: FDA-Public Use
  Company Number: US-B.I. PHARMACEUTICALS,INC./RIDGEFIELD-2010-BP-12453BP

PATIENT
  Age: 71 Year
  Sex: Male

DRUGS (6)
  1. SPIRIVA [Suspect]
     Indication: WHEEZING
     Route: 055
     Dates: start: 20101001, end: 20101105
  2. TOPROL-XL [Concomitant]
     Indication: HYPERTENSION
     Dosage: 200 MG
     Route: 048
  3. NORVASC [Concomitant]
     Dosage: 5 MG
  4. DYAZIDE [Concomitant]
  5. MONOPRIL [Concomitant]
  6. PERCOCET [Concomitant]

REACTIONS (1)
  - BLOOD GLUCOSE INCREASED [None]
